FAERS Safety Report 17015195 (Version 1)
Quarter: 2019Q4

REPORT INFORMATION
  Report Type: Other
  Country: MA (occurrence: MA)
  Receive Date: 20191111
  Receipt Date: 20191111
  Transmission Date: 20200122
  Serious: Yes (Hospitalization)
  Sender: FDA-Public Use
  Company Number: MA-APTAPHARMA INC.-2076669

PATIENT
  Age: 62 Year
  Sex: Male

DRUGS (2)
  1. ACENOCOUMAROL (VITAMIN-K ANTAGONIST) [Suspect]
     Active Substance: ACENOCOUMAROL
     Route: 065
  2. IBUPROFEN ORAL [Suspect]
     Active Substance: IBUPROFEN
     Indication: PRODUCT USED FOR UNKNOWN INDICATION
     Route: 065

REACTIONS (2)
  - Self-medication [Unknown]
  - Pulmonary alveolar haemorrhage [Unknown]
